FAERS Safety Report 5187806-9 (Version None)
Quarter: 2006Q4

REPORT INFORMATION
  Report Type: 
  Country: None (occurrence: None)
  Receive Date: 20061221
  Receipt Date: 20060713
  Transmission Date: 20070319
  Serious: Yes (Other)
  Sender: FDA-Public Use
  Company Number: US-AVENTIS-200615903US

PATIENT
  Sex: Male
  Weight: 81.81 kg

DRUGS (2)
  1. KETEK [Suspect]
     Indication: LARYNGITIS
     Dosage: DOSE: 1 TABLET
     Route: 048
     Dates: start: 20041224, end: 20041231
  2. KETEK [Suspect]
     Indication: GASTROOESOPHAGEAL REFLUX DISEASE
     Dosage: DOSE: 1 TABLET
     Route: 048
     Dates: start: 20041224, end: 20041231

REACTIONS (4)
  - ALANINE AMINOTRANSFERASE INCREASED [None]
  - ASPARTATE AMINOTRANSFERASE INCREASED [None]
  - HEPATITIS [None]
  - SERUM FERRITIN INCREASED [None]
